FAERS Safety Report 20482558 (Version 1)
Quarter: 2022Q1

REPORT INFORMATION
  Report Type: Report from Study
  Country: US (occurrence: US)
  Receive Date: 20220217
  Receipt Date: 20220217
  Transmission Date: 20220423
  Serious: Yes (Other)
  Sender: FDA-Public Use
  Company Number: US-ABBVIE-22K-163-4279886-00

PATIENT
  Sex: Female

DRUGS (4)
  1. HUMIRA [Suspect]
     Active Substance: ADALIMUMAB
     Indication: Rheumatoid arthritis
     Dosage: CITRATE FREE
     Route: 058
  2. PFIZER-BIONTECH COVID-19 VACCINE [Suspect]
     Active Substance: TOZINAMERAN
     Indication: COVID-19 immunisation
     Dosage: 1ST DOSE
     Route: 030
     Dates: start: 20210320, end: 20210320
  3. PFIZER-BIONTECH COVID-19 VACCINE [Suspect]
     Active Substance: TOZINAMERAN
     Dosage: 2ND  DOSE
     Route: 030
     Dates: start: 20210410, end: 20210410
  4. PFIZER-BIONTECH COVID-19 VACCINE [Suspect]
     Active Substance: TOZINAMERAN
     Dosage: 3RD  DOSE (BOOSTER  DOSE)
     Route: 030
     Dates: start: 20210918, end: 20210918

REACTIONS (7)
  - Hernia [Recovering/Resolving]
  - Bladder prolapse [Recovering/Resolving]
  - Back injury [Recovering/Resolving]
  - Illness [Recovering/Resolving]
  - Feeling of body temperature change [Unknown]
  - Hyperhidrosis [Unknown]
  - Feeding disorder [Unknown]
